FAERS Safety Report 11761060 (Version 1)
Quarter: 2015Q4

REPORT INFORMATION
  Report Type: Spontaneous
  Country: US (occurrence: US)
  Receive Date: 20151120
  Receipt Date: 20151120
  Transmission Date: 20160304
  Serious: No
  Sender: FDA-Public Use
  Company Number: US-ELI_LILLY_AND_COMPANY-US201210001553

PATIENT
  Sex: Female

DRUGS (2)
  1. FORTEO [Suspect]
     Active Substance: TERIPARATIDE
     Dosage: 20 UG, QD
     Route: 065
  2. FORTEO [Suspect]
     Active Substance: TERIPARATIDE
     Indication: OSTEOPOROSIS
     Dosage: 20 UG, QD
     Route: 065
     Dates: start: 2012

REACTIONS (11)
  - Injection site discomfort [Not Recovered/Not Resolved]
  - Dyspepsia [Unknown]
  - Complex regional pain syndrome [Unknown]
  - Pain in extremity [Unknown]
  - Vomiting [Unknown]
  - Feeding disorder [Unknown]
  - Injection site pain [Unknown]
  - Injection site haemorrhage [Unknown]
  - Pain [Unknown]
  - Pollakiuria [Unknown]
  - Dyspnoea [Unknown]

NARRATIVE: CASE EVENT DATE: 2012
